FAERS Safety Report 7065038-7 (Version None)
Quarter: 2010Q4

REPORT INFORMATION
  Report Type: 
  Country: None (occurrence: None)
  Receive Date: 20101027
  Receipt Date: 19950314
  Transmission Date: 20110411
  Serious: Yes (Death, Hospitalization)
  Sender: FDA-Public Use
  Company Number: FR-ROCHE-940508037001

PATIENT
  Sex: Male
  Weight: 57 kg

DRUGS (1)
  1. ZALCITABINE [Suspect]
     Route: 048
     Dates: start: 19940314, end: 19940524

REACTIONS (2)
  - DEATH [None]
  - OESOPHAGITIS [None]
